FAERS Safety Report 11810322 (Version 1)
Quarter: 2015Q4

REPORT INFORMATION
  Report Type: Other
  Country: None (occurrence: GR)
  Receive Date: 20151208
  Receipt Date: 20151208
  Transmission Date: 20160305
  Serious: Yes (Other)
  Sender: FDA-Public Use
  Company Number: GR-MERCK KGAA-1045159

PATIENT

DRUGS (1)
  1. NOVOTHYROX [Suspect]
     Active Substance: LEVOTHYROXINE SODIUM

REACTIONS (1)
  - Warm type haemolytic anaemia [None]
